FAERS Safety Report 6308214-0 (Version None)
Quarter: 2009Q3

REPORT INFORMATION
  Report Type: 
  Country: None (occurrence: None)
  Receive Date: 20090813
  Receipt Date: 20090803
  Transmission Date: 20100115
  Serious: Yes (Other)
  Sender: FDA-Public Use
  Company Number: GB-PFIZER INC-2009235436

PATIENT

DRUGS (4)
  1. HEPARIN SODIUM [Interacting]
     Route: 065
  2. PONSTAN [Interacting]
  3. TRANEXAMIC ACID [Suspect]
     Route: 065
  4. WARFARIN [Suspect]
     Route: 065

REACTIONS (3)
  - DRUG INTERACTION [None]
  - HAEMORRHAGIC DIATHESIS [None]
  - INCREASED TENDENCY TO BRUISE [None]
